FAERS Safety Report 25528834 (Version 2)
Quarter: 2025Q3

REPORT INFORMATION
  Report Type: Report from Study
  Country: US (occurrence: US)
  Receive Date: 20250708
  Receipt Date: 20250912
  Transmission Date: 20251021
  Serious: No
  Sender: ACADIA PHARMACEUTICALS
  Company Number: US-ACADIA PHARMACEUTICALS INC.-ACA-2025-PIM-007965

PATIENT
  Age: 78 Year
  Sex: Female

DRUGS (8)
  1. NUPLAZID [Suspect]
     Active Substance: PIMAVANSERIN TARTRATE
     Indication: Parkinson^s disease psychosis
     Dosage: 34 MILLIGRAM, QD
     Route: 048
     Dates: start: 20231125
  2. SERTRALINE [Concomitant]
     Active Substance: SERTRALINE HYDROCHLORIDE
  3. CARBIDOPA\LEVODOPA [Concomitant]
     Active Substance: CARBIDOPA\LEVODOPA
  4. RYTARY [Concomitant]
     Active Substance: CARBIDOPA\LEVODOPA
  5. PRAMIPEXOLE [Concomitant]
     Active Substance: PRAMIPEXOLE
  6. RIVASTIGMINE [Concomitant]
     Active Substance: RIVASTIGMINE
  7. AMANTADINE [Concomitant]
     Active Substance: AMANTADINE
     Dates: end: 20250207
  8. FEMARA [Concomitant]
     Active Substance: LETROZOLE
     Dates: end: 20250207

REACTIONS (2)
  - Drug ineffective [Not Recovered/Not Resolved]
  - Therapy cessation [Not Recovered/Not Resolved]

NARRATIVE: CASE EVENT DATE: 20250702
